FAERS Safety Report 8161203-6 (Version None)
Quarter: 2012Q1

REPORT INFORMATION
  Report Type: 
  Country: None (occurrence: None)
  Receive Date: 20120224
  Receipt Date: 20120217
  Transmission Date: 20120608
  Serious: Yes (Other)
  Sender: FDA-Public Use
  Company Number: US-TEVA-323739USA

PATIENT

DRUGS (1)
  1. VENLAFAXINE [Suspect]

REACTIONS (1)
  - EYE DISORDER [None]
